FAERS Safety Report 5121090-7 (Version None)
Quarter: 2006Q4

REPORT INFORMATION
  Report Type: 
  Country: None (occurrence: None)
  Receive Date: 20061005
  Receipt Date: 20060927
  Transmission Date: 20070319
  Serious: Yes (Death)
  Sender: FDA-Public Use
  Company Number: JP-BRISTOL-MYERS SQUIBB COMPANY-13525977

PATIENT
  Age: 70 Year
  Sex: Male

DRUGS (3)
  1. PARAPLATIN [Suspect]
     Indication: LUNG NEOPLASM MALIGNANT
     Route: 042
  2. DOCETAXEL [Concomitant]
  3. RADIOTHERAPY [Concomitant]
     Dosage: RADIATION THERAPY ADMINISTERED AT 40 GRAY

REACTIONS (1)
  - RADIATION PNEUMONITIS [None]
